FAERS Safety Report 7610127-9 (Version None)
Quarter: 2011Q3

REPORT INFORMATION
  Report Type: 
  Country: None (occurrence: None)
  Receive Date: 20110715
  Receipt Date: 20110706
  Transmission Date: 20111222
  Serious: No
  Sender: FDA-Public Use
  Company Number: US-BIOGENIDEC-2011BI021861

PATIENT
  Sex: Female

DRUGS (1)
  1. TYSABRI [Suspect]
     Indication: MULTIPLE SCLEROSIS
     Route: 042
     Dates: start: 20100930

REACTIONS (8)
  - COGNITIVE DISORDER [None]
  - AMNESIA [None]
  - CONTUSION [None]
  - SPINAL COLUMN INJURY [None]
  - CONFUSIONAL STATE [None]
  - HEARING IMPAIRED [None]
  - FALL [None]
  - NECK INJURY [None]
